FAERS Safety Report 10506637 (Version 1)
Quarter: 2014Q3

REPORT INFORMATION
  Report Type: Spontaneous
  Country: US (occurrence: None)
  Receive Date: 20140915
  Receipt Date: 20140915
  Transmission Date: 20150326
  Serious: Yes (Other)
  Sender: FDA-Public Use
  Company Number: 2013-US-004312

PATIENT
  Age: 44 Year
  Sex: Female
  Weight: 86.2 kg

DRUGS (8)
  1. ADDERALL [Concomitant]
     Active Substance: AMPHETAMINE ASPARTATE\AMPHETAMINE SULFATE\DEXTROAMPHETAMINE SACCHARATE\DEXTROAMPHETAMINE SULFATE
  2. XYREM [Suspect]
     Active Substance: SODIUM OXYBATE
     Indication: NARCOLEPSY
     Route: 048
     Dates: start: 200605, end: 2006
  3. CORTISONE (CORTISONE ACETATE) [Concomitant]
  4. IMIPRAMINE (IMIPRAMINE HYDROCHLORIDE) [Concomitant]
     Active Substance: IMIPRAMINE
  5. VYVANSE [Concomitant]
     Active Substance: LISDEXAMFETAMINE DIMESYLATE
  6. XYREM [Suspect]
     Active Substance: SODIUM OXYBATE
     Indication: CATAPLEXY
     Route: 048
     Dates: start: 200605, end: 2006
  7. DATURA STRAMONIUM (DATURA STRAMONIUM) ORAL DRUG [Concomitant]
  8. DEXADRINE (DEXAMFETAMINE SULFATE) [Concomitant]

REACTIONS (5)
  - Weight increased [None]
  - Hypertension [None]
  - Insomnia [None]
  - Depressed mood [None]
  - Extra dose administered [None]

NARRATIVE: CASE EVENT DATE: 2011
